FAERS Safety Report 6102202-5 (Version None)
Quarter: 2009Q1

REPORT INFORMATION
  Report Type: 
  Country: None (occurrence: None)
  Receive Date: 20090304
  Receipt Date: 20090223
  Transmission Date: 20090719
  Serious: Yes (Other)
  Sender: FDA-Public Use
  Company Number: US-AMGEN-US335235

PATIENT
  Age: 70 Year
  Sex: Male

DRUGS (4)
  1. KEPIVANCE [Suspect]
     Indication: MUCOSAL INFLAMMATION
  2. MELPHALAN [Concomitant]
  3. DECADRON [Concomitant]
  4. HEMATOPOETIC PROGENITOR CELLS HUMAN [Concomitant]

REACTIONS (4)
  - CELL MARKER INCREASED [None]
  - LICHEN PLANUS [None]
  - ORAL MUCOSAL ERUPTION [None]
  - RASH PAPULAR [None]
